FAERS Safety Report 6083924-1 (Version None)
Quarter: 2009Q1

REPORT INFORMATION
  Report Type: 
  Country: None (occurrence: None)
  Receive Date: 20090219
  Receipt Date: 20090210
  Transmission Date: 20090719
  Serious: Yes (Hospitalization)
  Sender: FDA-Public Use
  Company Number: GB-ASTRAZENECA-2009GB00262

PATIENT
  Age: 44 Year
  Sex: Female
  Weight: 65 kg

DRUGS (7)
  1. MARCAINE 0.25% (BUPIVACAINE) [Suspect]
     Indication: NERVE BLOCK
     Route: 037
     Dates: start: 20090107, end: 20090107
  2. MARCAINE 0.25% (BUPIVACAINE) [Suspect]
     Indication: HYSTEROSCOPY
     Route: 037
     Dates: start: 20090107, end: 20090107
  3. SALINE [Concomitant]
     Dosage: MIXED WITH MARCAIN
     Route: 037
  4. DIAMORPHINE [Concomitant]
     Indication: ANALGESIC THERAPY
     Route: 037
  5. PROPOFOL [Concomitant]
     Indication: ANAESTHESIA
     Route: 042
  6. FENTANYL [Concomitant]
     Indication: ANAESTHESIA
     Route: 042
  7. ROCURONIUM BROMIDE [Concomitant]
     Indication: ANAESTHESIA
     Route: 042

REACTIONS (3)
  - GAIT DISTURBANCE [None]
  - MUSCULAR WEAKNESS [None]
  - NEUROMUSCULAR BLOCK PROLONGED [None]
